FAERS Safety Report 4950930-7 (Version None)
Quarter: 2006Q1

REPORT INFORMATION
  Report Type: 
  Country: None (occurrence: None)
  Receive Date: 20060322
  Receipt Date: 20060224
  Transmission Date: 20060701
  Serious: Yes (Hospitalization)
  Sender: FDA-Public Use
  Company Number: US-BOEHRINGER INGELHEIM PHARMACEUTICALS, INC.-2006-BP-02181BP

PATIENT
  Age: 83 Year
  Sex: Female

DRUGS (5)
  1. MOBIC (MELOXICAM) TABLETS [Suspect]
     Indication: OSTEOARTHRITIS
     Route: 048
     Dates: start: 20050322, end: 20060220
  2. SYNTHROID [Concomitant]
  3. NORVASC [Concomitant]
  4. LIPITOR [Concomitant]
  5. CYMBALTA [Concomitant]
     Dates: start: 20040928

REACTIONS (5)
  - ASTHENIA [None]
  - DIZZINESS [None]
  - GASTRIC ULCER [None]
  - GASTROINTESTINAL HAEMORRHAGE [None]
  - HAEMOGLOBIN DECREASED [None]
